FAERS Safety Report 7639081-0 (Version None)
Quarter: 2011Q3

REPORT INFORMATION
  Report Type: 
  Country: None (occurrence: None)
  Receive Date: 20110727
  Receipt Date: 20110720
  Transmission Date: 20111222
  Serious: Yes (Disabling)
  Sender: FDA-Public Use
  Company Number: GB-TEVA-291965ISR

PATIENT
  Age: 68 Year
  Sex: Male
  Weight: 131.4 kg

DRUGS (1)
  1. ALENDRONIC ACID [Suspect]
     Indication: OSTEOPOROSIS PROPHYLAXIS
     Route: 048

REACTIONS (3)
  - ASTHENIA [None]
  - EXTRASYSTOLES [None]
  - MYALGIA [None]
